FAERS Safety Report 9343604 (Version 1)
Quarter: 2013Q2

REPORT INFORMATION
  Report Type: Spontaneous
  Country: BR (occurrence: BR)
  Receive Date: 20130612
  Receipt Date: 20130612
  Transmission Date: 20140414
  Serious: Yes (Other)
  Sender: FDA-Public Use
  Company Number: BR-AMGEN-BRASP2013041063

PATIENT
  Age: 45 Year
  Sex: Female
  Weight: 70 kg

DRUGS (7)
  1. ENBREL [Suspect]
     Indication: RHEUMATOID ARTHRITIS
     Dosage: UNK
     Route: 065
     Dates: start: 200812, end: 2010
  2. ENBREL [Suspect]
     Dosage: UNK
     Route: 065
     Dates: start: 201302, end: 201304
  3. ENBREL [Suspect]
     Dosage: 50 MG, QWK
     Route: 058
     Dates: start: 201304
  4. METHOTREXATE [Concomitant]
     Dosage: 3 TABLETS OF 2.5MG (7.5 MG), 2X/WEEK
     Route: 048
  5. METICORTEN [Concomitant]
     Dosage: ONE TABLET OF 5 MG, 1X/DAY
     Route: 048
  6. ARAVA [Concomitant]
     Dosage: ONE TABLET OF 20 MG, 1X/DAY
     Route: 048
  7. ADDERA D3 [Concomitant]
     Dosage: 40 DROPS 2X/WEEK
     Route: 048

REACTIONS (1)
  - Joint injury [Unknown]
